FAERS Safety Report 6554276-5 (Version None)
Quarter: 2010Q1

REPORT INFORMATION
  Report Type: 
  Country: None (occurrence: None)
  Receive Date: 20100127
  Receipt Date: 20100118
  Transmission Date: 20100710
  Serious: Yes (Other)
  Sender: FDA-Public Use
  Company Number: US-TYCO HEALTHCARE/MALLINCKRODT-T201000118

PATIENT
  Sex: Female

DRUGS (3)
  1. OPTIRAY 350 [Suspect]
     Indication: ANGIOGRAM
     Dosage: 100 UNK, SINGLE
     Route: 042
     Dates: start: 20100113, end: 20100113
  2. PREDNISONE [Concomitant]
     Indication: PROPHYLAXIS
     Dosage: UNK, SINGLE
  3. BENADRYL [Concomitant]
     Indication: PROPHYLAXIS
     Dosage: UNK, SINGLE

REACTIONS (1)
  - ANAPHYLACTIC REACTION [None]
